FAERS Safety Report 7928154-0 (Version None)
Quarter: 2011Q4

REPORT INFORMATION
  Report Type: 
  Country: None (occurrence: None)
  Receive Date: 20111118
  Receipt Date: 20111109
  Transmission Date: 20120403
  Serious: Yes (Hospitalization)
  Sender: FDA-Public Use
  Company Number: CA-BAXTER-2011BH036121

PATIENT
  Sex: Male

DRUGS (1)
  1. EXTRANEAL [Suspect]
     Indication: PERITONEAL DIALYSIS
     Route: 033
     Dates: start: 20110301, end: 20110101

REACTIONS (8)
  - ASTHENIA [None]
  - MALAISE [None]
  - HYPERSENSITIVITY [None]
  - SKIN EXFOLIATION [None]
  - MOTOR DYSFUNCTION [None]
  - PRURITUS [None]
  - MUSCLE TWITCHING [None]
  - ACTIVITIES OF DAILY LIVING IMPAIRED [None]
